FAERS Safety Report 25926349 (Version 1)
Quarter: 2025Q4

REPORT INFORMATION
  Report Type: Spontaneous
  Country: IR (occurrence: IR)
  Receive Date: 20251015
  Receipt Date: 20251015
  Transmission Date: 20260118
  Serious: Yes (Hospitalization)
  Sender: NOVARTIS
  Company Number: IR-002147023-NVSC2025IR157384

PATIENT
  Age: 88 Year
  Sex: Female

DRUGS (14)
  1. OCTREOTIDE [Suspect]
     Active Substance: OCTREOTIDE
     Indication: Antiemetic supportive care
     Dosage: UNK
     Route: 065
  2. OCTREOTIDE [Suspect]
     Active Substance: OCTREOTIDE
     Indication: Gastrointestinal haemorrhage
  3. OCTREOTIDE [Suspect]
     Active Substance: OCTREOTIDE
  4. CIPROFLOXACIN [Concomitant]
     Active Substance: CIPROFLOXACIN
     Indication: Antibiotic therapy
     Dosage: 400 MG (AS A STAT DOSE)
     Route: 042
  5. CIPROFLOXACIN [Concomitant]
     Active Substance: CIPROFLOXACIN
     Dosage: 400 MG, Q8H (THIS WAS SUBSEQUENTLY REPEATED EVERY 8 HOURS FOR SEVERAL DAYS)
     Route: 042
  6. HALOPERIDOL [Concomitant]
     Active Substance: HALOPERIDOL
     Indication: Antipsychotic therapy
     Dosage: 2.5 MG (AS NEEDED FOR AGITATION WHENEVER NECESSARY)
     Route: 065
  7. METOCLOPRAMIDE [Concomitant]
     Active Substance: METOCLOPRAMIDE
     Indication: Antiemetic supportive care
     Dosage: 10 MG, BID (FOR 24 HOURS)
     Route: 065
  8. METOCLOPRAMIDE [Concomitant]
     Active Substance: METOCLOPRAMIDE
     Dosage: 10 MG (THREE TIMES A DAY FOR THE NEXT 48 HOURS)
     Route: 065
  9. PANTOPRAZOLE [Concomitant]
     Active Substance: PANTOPRAZOLE
     Indication: Antiemetic supportive care
     Dosage: UNK
     Route: 065
  10. PANTOPRAZOLE [Concomitant]
     Active Substance: PANTOPRAZOLE
     Indication: Gastrointestinal haemorrhage
  11. LOSARTAN [Concomitant]
     Active Substance: LOSARTAN
     Indication: Hypertension
     Dosage: UNK
     Route: 065
  12. ALBUTEROL [Concomitant]
     Active Substance: ALBUTEROL
     Indication: Chronic obstructive pulmonary disease
     Dosage: UNK
     Route: 065
  13. FLUTICASONE PROPIONATE\SALMETEROL XINAFOATE [Concomitant]
     Active Substance: FLUTICASONE PROPIONATE\SALMETEROL XINAFOATE
     Indication: Chronic obstructive pulmonary disease
     Dosage: UNK
     Route: 065
  14. HEPARIN [Concomitant]
     Active Substance: HEPARIN SODIUM
     Indication: Atrial fibrillation
     Dosage: UNK (1000 UNITS PER HOUR)
     Route: 065

REACTIONS (1)
  - Dyskinesia [Recovered/Resolved]
